FAERS Safety Report 5421971-0 (Version None)
Quarter: 2007Q3

REPORT INFORMATION
  Report Type: 
  Country: None (occurrence: None)
  Receive Date: 20070822
  Receipt Date: 20070820
  Transmission Date: 20080115
  Serious: Yes (Death, Hospitalization)
  Sender: FDA-Public Use
  Company Number: PHRM2007FR02035

PATIENT
  Age: 58 Year
  Sex: Male

DRUGS (10)
  1. TEGRETOL [Suspect]
     Indication: STATUS EPILEPTICUS
     Dosage: UNK, UNK
     Route: 048
     Dates: start: 20070619
  2. TEGRETOL [Suspect]
     Dosage: 200 MG, TID
     Route: 048
     Dates: start: 20070724
  3. KEPPRA [Suspect]
     Indication: STATUS EPILEPTICUS
     Dosage: 3 G DAILY
     Route: 048
     Dates: start: 20070618, end: 20070718
  4. KEPPRA [Suspect]
     Dosage: 500 MG, TID
     Route: 048
     Dates: start: 20070719
  5. SUFENTA [Suspect]
     Dosage: UNK, UNK
     Route: 042
     Dates: start: 20070614
  6. NIMBEX [Suspect]
     Dosage: UNK, UNK
     Route: 048
     Dates: start: 20070701
  7. HYPNOVEL [Suspect]
     Route: 048
     Dates: start: 20070701
  8. AOTAL [Concomitant]
  9. SPECIAFOLDINE [Concomitant]
  10. LUDIOMIL                           /00331902/ [Concomitant]

REACTIONS (15)
  - ABDOMINAL DISTENSION [None]
  - ANAEMIA MACROCYTIC [None]
  - BLOOD SODIUM DECREASED [None]
  - CONFUSIONAL STATE [None]
  - CONSTIPATION [None]
  - DEATH [None]
  - DISORIENTATION [None]
  - HEPATIC ENCEPHALOPATHY [None]
  - HYPOALBUMINAEMIA [None]
  - ILEUS [None]
  - INTESTINAL OBSTRUCTION [None]
  - INTUBATION [None]
  - LAPAROTOMY [None]
  - MEGACOLON [None]
  - PNEUMONIA [None]
